FAERS Safety Report 11590610 (Version 2)
Quarter: 2015Q4

REPORT INFORMATION
  Report Type: Spontaneous
  Country: DE (occurrence: DE)
  Receive Date: 20151002
  Receipt Date: 20151026
  Transmission Date: 20160304
  Serious: Yes (Other)
  Sender: FDA-Public Use
  Company Number: DE-TEVA-598464GER

PATIENT
  Age: 31 Year
  Sex: Male

DRUGS (1)
  1. ZOLPIDEM [Suspect]
     Active Substance: ZOLPIDEM\ZOLPIDEM TARTRATE
     Indication: SLEEP DISORDER
     Route: 048

REACTIONS (6)
  - Anterograde amnesia [Unknown]
  - Somnambulism [Recovered/Resolved]
  - Road traffic accident [Recovered/Resolved]
  - Poisoning [Recovering/Resolving]
  - Abnormal behaviour [Recovered/Resolved]
  - Accidental overdose [Unknown]
